FAERS Safety Report 5903933-X (Version None)
Quarter: 2008Q3

REPORT INFORMATION
  Report Type: 
  Country: None (occurrence: None)
  Receive Date: 20080930
  Receipt Date: 20080917
  Transmission Date: 20090109
  Serious: Yes (Life-Threatening, Hospitalization)
  Sender: FDA-Public Use
  Company Number: US-ELI_LILLY_AND_COMPANY-US200809004062

PATIENT
  Sex: Male

DRUGS (3)
  1. ZYPREXA [Suspect]
     Dosage: 10 MG, UNK
  2. ZYPREXA [Suspect]
     Dosage: 10 MG, UNK
  3. LORAZEPAM [Concomitant]

REACTIONS (2)
  - PSYCHIATRIC DECOMPENSATION [None]
  - RESPIRATORY RATE DECREASED [None]
